FAERS Safety Report 15958428 (Version 2)
Quarter: 2019Q1

REPORT INFORMATION
  Report Type: Spontaneous
  Country: TR (occurrence: TR)
  Receive Date: 20190213
  Receipt Date: 20190314
  Transmission Date: 20190417
  Serious: Yes (Other)
  Sender: FDA-Public Use
  Company Number: PHHY2019TR031565

PATIENT
  Age: 77 Year
  Sex: Male

DRUGS (4)
  1. EXELON PATCH [Suspect]
     Active Substance: RIVASTIGMINE
     Indication: AMNESIA
     Dosage: 4.6 MG, QD (PATCH 5 (CM2), 09 MG RIVASTIGMINE BASE)
     Route: 062
     Dates: start: 201803
  2. EXELON PATCH [Suspect]
     Active Substance: RIVASTIGMINE
     Dosage: 9.5 MG, QD (PATCH 10 (CM2), 18 MG RIVASTIGMINE BASE))
     Route: 062
  3. EXELON PATCH [Suspect]
     Active Substance: RIVASTIGMINE
     Dosage: 4.6 MG, QD (PATCH 5 (CM2), 09 MG RIVASTIGMINE BASE)
     Route: 062
  4. EXELON [Suspect]
     Active Substance: RIVASTIGMINE TARTRATE
     Indication: AMNESIA
     Dosage: 4.5 ML, BID (MORNING AND EVENING)
     Route: 048

REACTIONS (7)
  - Application site pruritus [Unknown]
  - Application site erythema [Unknown]
  - Skin swelling [Unknown]
  - Contusion [Unknown]
  - Skin disorder [Unknown]
  - Dermatitis allergic [Unknown]
  - Drug ineffective [Unknown]
